FAERS Safety Report 5882742-4 (Version None)
Quarter: 2008Q3

REPORT INFORMATION
  Report Type: 
  Country: None (occurrence: None)
  Receive Date: 20080913
  Receipt Date: 20080814
  Transmission Date: 20090109
  Serious: No
  Sender: FDA-Public Use
  Company Number: US-ABBOTT-08P-163-0470855-00

PATIENT
  Sex: Female
  Weight: 90.8 kg

DRUGS (2)
  1. HUMIRA [Suspect]
     Indication: ANKYLOSING SPONDYLITIS
     Route: 058
     Dates: start: 20080501, end: 20080701
  2. HYDROCODONE BITARTRATE [Concomitant]
     Indication: ANKYLOSING SPONDYLITIS
     Dosage: AS NEEDED USE 2-4 WEEKLY 5/500 MG
     Route: 048
     Dates: start: 20080101

REACTIONS (2)
  - PAIN [None]
  - VULVOVAGINAL PRURITUS [None]
